FAERS Safety Report 5928796-8 (Version None)
Quarter: 2008Q4

REPORT INFORMATION
  Report Type: 
  Country: None (occurrence: None)
  Receive Date: 20081020
  Receipt Date: 20081007
  Transmission Date: 20090506
  Serious: Yes (Hospitalization, Disabling, Other)
  Sender: FDA-Public Use
  Company Number: 2008-03628

PATIENT
  Age: 57 Year
  Sex: Male

DRUGS (5)
  1. VELCADE [Suspect]
     Indication: MULTIPLE MYELOMA
     Dosage: 2.6 MG,
     Dates: start: 20080723, end: 20080822
  2. DEXAMETHASONE [Concomitant]
  3. ALLOPURINOL [Concomitant]
  4. ACYCLOVIR [Concomitant]
  5. OMEPRAZOLE [Concomitant]

REACTIONS (11)
  - ANXIETY [None]
  - ASTHENIA [None]
  - CONFUSIONAL STATE [None]
  - DECREASED APPETITE [None]
  - DEMENTIA [None]
  - DISORIENTATION [None]
  - HALLUCINATION [None]
  - HYPERVENTILATION [None]
  - LETHARGY [None]
  - NEUTROPENIA [None]
  - TREMOR [None]
